FAERS Safety Report 9149951 (Version 1)
Quarter: 2013Q1

REPORT INFORMATION
  Report Type: Spontaneous
  Country: US (occurrence: None)
  Receive Date: 20130228
  Receipt Date: 20130228
  Transmission Date: 20140127
  Serious: Yes (Hospitalization)
  Sender: FDA-Public Use
  Company Number: None

PATIENT
  Age: 63 Year
  Sex: Male
  Weight: 227.3 kg

DRUGS (2)
  1. SIMVASTATIN [Suspect]
     Indication: HYPERLIPIDAEMIA
     Route: 048
     Dates: start: 20130217, end: 20130217
  2. DILTIAZEM [Suspect]
     Indication: ATRIAL FIBRILLATION
     Dates: start: 20130217, end: 20130218

REACTIONS (4)
  - Aspiration [None]
  - Respiratory distress [None]
  - Pyrexia [None]
  - Rhabdomyolysis [None]
